FAERS Safety Report 9070550 (Version 2)
Quarter: 2013Q2

REPORT INFORMATION
  Report Type: Spontaneous
  Country: IT (occurrence: IT)
  Receive Date: 20130215
  Receipt Date: 20130426
  Transmission Date: 20140414
  Serious: No
  Sender: FDA-Public Use
  Company Number: IT-JNJFOC-20130201115

PATIENT
  Age: 75 Year
  Sex: Male

DRUGS (2)
  1. PALEXIA COMPRESSE A RILASCIO PROLUNGATO [Suspect]
     Indication: BACK PAIN
     Route: 048
     Dates: start: 20120801, end: 20130120
  2. ZOLOFT [Interacting]
     Indication: PRODUCT USED FOR UNKNOWN INDICATION
     Route: 048
     Dates: start: 2012

REACTIONS (9)
  - Agitation [Recovered/Resolved]
  - Insomnia [Recovered/Resolved]
  - Drug interaction [Recovered/Resolved]
  - Tremor [Recovered/Resolved]
  - Hyperhidrosis [Recovered/Resolved]
  - Feeling hot [Recovered/Resolved]
  - Muscle contractions involuntary [Recovered/Resolved]
  - Nightmare [Recovered/Resolved]
  - Hyperhidrosis [Recovered/Resolved]
